FAERS Safety Report 22945511 (Version 2)
Quarter: 2023Q4

REPORT INFORMATION
  Report Type: Spontaneous
  Country: US (occurrence: US)
  Receive Date: 20230914
  Receipt Date: 20231103
  Transmission Date: 20240110
  Serious: No
  Sender: FDA-Public Use
  Company Number: US-PFIZER INC-PV202300154070

PATIENT
  Age: 63 Year
  Sex: Male

DRUGS (1)
  1. XELJANZ XR [Suspect]
     Active Substance: TOFACITINIB CITRATE
     Indication: Rheumatoid arthritis
     Dosage: 11 MG, 1X/DAY
     Route: 048
     Dates: start: 202308

REACTIONS (5)
  - Productive cough [Not Recovered/Not Resolved]
  - Muscle spasms [Unknown]
  - Night sweats [Not Recovered/Not Resolved]
  - Visual impairment [Unknown]
  - Malaise [Unknown]

NARRATIVE: CASE EVENT DATE: 20230101
